FAERS Safety Report 6077098-0 (Version None)
Quarter: 2009Q1

REPORT INFORMATION
  Report Type: 
  Country: None (occurrence: None)
  Receive Date: 20090213
  Receipt Date: 20090204
  Transmission Date: 20090719
  Serious: Yes (Other)
  Sender: FDA-Public Use
  Company Number: PHEH2007US14844

PATIENT
  Sex: Female
  Weight: 64.399 kg

DRUGS (15)
  1. AREDIA [Suspect]
     Indication: HYPERCALCAEMIA
     Dosage: 90 MG Q 4 WEEKS
     Route: 042
     Dates: start: 20000523
  2. ZOMETA [Suspect]
     Dosage: 4 MG Q 4 WEEKS
     Route: 042
  3. DEXAMETHASONE TAB [Concomitant]
     Dosage: 40 MG, QD
     Dates: start: 20000701
  4. REVLIMID [Concomitant]
     Dosage: 25 MG, QD
  5. VELCADE [Concomitant]
  6. EVISTA [Concomitant]
     Indication: OSTEOPOROSIS
  7. PROCRIT                            /00909301/ [Concomitant]
     Dosage: UNK
     Dates: start: 20020901
  8. FOSAMAX [Concomitant]
     Indication: OSTEOPOROSIS
  9. IMIPRAMINE [Concomitant]
     Dosage: 25 MG, UNK
  10. PREMPRO [Concomitant]
     Dosage: 0.45/1.5 MG DAILY
  11. ARANESP [Concomitant]
     Dosage: 200 MCG
  12. THALOMID [Concomitant]
  13. COUMADIN [Concomitant]
     Dosage: 1 MG, QD
  14. KYTRIL [Concomitant]
     Dosage: 1 MG, UNK
  15. FERROUS SULFATE TAB [Concomitant]
     Indication: ANAEMIA
     Dosage: UNK, DAILY
     Dates: start: 20000505

REACTIONS (24)
  - ANXIETY [None]
  - ARTHRALGIA [None]
  - BONE LESION [None]
  - BONE MARROW TRANSPLANT [None]
  - BONE PAIN [None]
  - CHOLELITHIASIS [None]
  - DEFORMITY [None]
  - DEPRESSION [None]
  - DIABETES MELLITUS [None]
  - GASTROOESOPHAGEAL REFLUX DISEASE [None]
  - GINGIVAL ERYTHEMA [None]
  - HYPERTENSION [None]
  - INFECTION [None]
  - NECK PAIN [None]
  - OSTEONECROSIS [None]
  - OSTEOPENIA [None]
  - OSTEOPOROSIS [None]
  - PAIN [None]
  - PAIN IN JAW [None]
  - PELVIC DISCOMFORT [None]
  - PELVIC PROLAPSE [None]
  - STEM CELL TRANSPLANT [None]
  - STOMATITIS [None]
  - URINARY INCONTINENCE [None]
